FAERS Safety Report 4709521-5 (Version None)
Quarter: 2005Q3

REPORT INFORMATION
  Report Type: 
  Country: None (occurrence: None)
  Receive Date: 20050707
  Receipt Date: 20050627
  Transmission Date: 20060218
  Serious: Yes (Disabling, Other)
  Sender: FDA-Public Use
  Company Number: 2005081918

PATIENT
  Sex: Male
  Weight: 86.1834 kg

DRUGS (16)
  1. VIAGRA [Suspect]
     Indication: ERECTILE DYSFUNCTION
     Dosage: 50 MG (50 MG AS NECESSARY) ORAL
     Route: 048
     Dates: end: 20050101
  2. LIPITOR [Suspect]
     Indication: BLOOD CHOLESTEROL INCREASED
     Dosage: 20 MG (20 MG 1 IN 1 D) ORAL
     Route: 048
  3. CRESTOR [Suspect]
     Indication: BLOOD CHOLESTEROL
  4. MEVACOR [Suspect]
     Indication: BLOOD CHOLESTEROL
     Dosage: 10 MG ORAL
     Route: 048
  5. CLARITIN [Concomitant]
  6. XALATAN [Concomitant]
  7. BETIMOL (TIMOLOL) [Concomitant]
  8. VASERETIC (ENALAPRIL MALEATE, HYDROCHLOROTHIAIZDE) [Concomitant]
  9. ALLOPURINOL [Concomitant]
  10. PERCOCET [Concomitant]
  11. ULTRAM [Concomitant]
  12. ASPIRIN [Concomitant]
  13. CENTRUM (MINERALS NOS, VITAMINS NOS) [Concomitant]
  14. DOCUSATE SODIUM (DOCUSATE SODIUM) [Concomitant]
  15. FISH OIL (FISH OIL) [Concomitant]
  16. SAW PALMETTO (SAW PALMETTO) [Concomitant]

REACTIONS (7)
  - BLINDNESS UNILATERAL [None]
  - BLOOD PRESSURE DECREASED [None]
  - CONDITION AGGRAVATED [None]
  - IMPAIRED DRIVING ABILITY [None]
  - MUSCLE SPASMS [None]
  - OPTIC ISCHAEMIC NEUROPATHY [None]
  - PAPILLOEDEMA [None]
